FAERS Safety Report 8813711 (Version 1)
Quarter: 2012Q4

REPORT INFORMATION
  Report Type: Report from Study
  Country: CA (occurrence: CA)
  Receive Date: 20120928
  Receipt Date: 20120928
  Transmission Date: 20130627
  Serious: Yes (Other)
  Sender: FDA-Public Use
  Company Number: CA-ROCHE-1135149

PATIENT
  Sex: Female

DRUGS (5)
  1. MABTHERA [Suspect]
     Indication: THROMBOTIC THROMBOCYTOPENIC PURPURA
     Route: 042
     Dates: start: 20120824, end: 20120914
  2. LEVOTHYROXINE [Concomitant]
  3. SERTRALINE [Concomitant]
  4. LYRICA [Concomitant]
  5. SYMBICORT [Concomitant]

REACTIONS (6)
  - Chest pain [Not Recovered/Not Resolved]
  - Dyspnoea [Not Recovered/Not Resolved]
  - Catheter site infection [Not Recovered/Not Resolved]
  - Pyrexia [Not Recovered/Not Resolved]
  - Fatigue [Not Recovered/Not Resolved]
  - Dizziness [Not Recovered/Not Resolved]
